FAERS Safety Report 9486582 (Version 1)
Quarter: 2013Q3

REPORT INFORMATION
  Report Type: Spontaneous
  Country: US (occurrence: None)
  Receive Date: 20130827
  Receipt Date: 20130827
  Transmission Date: 20140515
  Serious: Yes (Life-Threatening, Hospitalization)
  Sender: FDA-Public Use
  Company Number: 2013P1018528

PATIENT
  Age: 21 Year
  Sex: Male

DRUGS (3)
  1. CITALOPRAM [Suspect]
  2. OLANZAPINE [Suspect]
  3. CLONAZEPAM [Suspect]

REACTIONS (13)
  - Unresponsive to stimuli [None]
  - Decorticate posture [None]
  - Miosis [None]
  - Rales [None]
  - Sedation [None]
  - Electrocardiogram QT prolonged [None]
  - Leukocytosis [None]
  - Blood lactic acid increased [None]
  - Convulsion [None]
  - Hypotension [None]
  - Bradycardia [None]
  - Drug screen positive [None]
  - Overdose [None]
